FAERS Safety Report 4468065-9 (Version None)
Quarter: 2004Q4

REPORT INFORMATION
  Report Type: 
  Country: None (occurrence: None)
  Receive Date: 20041004
  Receipt Date: 20040928
  Transmission Date: 20050328
  Serious: Yes (Other)
  Sender: FDA-Public Use
  Company Number: BR-SHR-03-008357

PATIENT
  Age: 37 Year
  Sex: Female
  Weight: 78 kg

DRUGS (1)
  1. MIRENA [Suspect]
     Indication: CONTRACEPTION
     Dosage: 20 MCG, CONT, INTRA-UTERINE
     Route: 015
     Dates: start: 20001201

REACTIONS (4)
  - ACNE [None]
  - BLOOD PRESSURE INCREASED [None]
  - STRESS SYMPTOMS [None]
  - WEIGHT FLUCTUATION [None]
